FAERS Safety Report 10245174 (Version 2)
Quarter: 2014Q2

REPORT INFORMATION
  Report Type: Report from Study
  Country: US (occurrence: US)
  Receive Date: 20140618
  Receipt Date: 20140618
  Transmission Date: 20141212
  Serious: Yes (Hospitalization, Other)
  Sender: FDA-Public Use
  Company Number: US-ABBVIE-14P-163-1201746-00

PATIENT
  Age: 55 Year
  Sex: Male
  Weight: 71.73 kg

DRUGS (2)
  1. HUMIRA [Suspect]
     Indication: CROHN^S DISEASE
     Route: 058
     Dates: start: 20131210
  2. HUMIRA [Suspect]
     Route: 058

REACTIONS (4)
  - Anal ulcer [Unknown]
  - Anal fistula [Unknown]
  - Lower gastrointestinal haemorrhage [Unknown]
  - Anorectal cellulitis [Unknown]
